FAERS Safety Report 6252715-0 (Version None)
Quarter: 2009Q2

REPORT INFORMATION
  Report Type: 
  Country: None (occurrence: None)
  Receive Date: 20090629
  Receipt Date: 20090629
  Transmission Date: 20091009
  Serious: Yes (Hospitalization)
  Sender: FDA-Public Use
  Company Number: None

PATIENT
  Age: 72 Year
  Sex: Male
  Weight: 88 kg

DRUGS (2)
  1. METOLAZONE [Suspect]
     Indication: OEDEMA
     Dosage: 2.5 MG OTHER PO
     Route: 048
     Dates: start: 20090420, end: 20090520
  2. METOLAZONE [Suspect]
     Indication: RENAL FAILURE CHRONIC
     Dosage: 2.5 MG OTHER PO
     Route: 048
     Dates: start: 20090420, end: 20090520

REACTIONS (4)
  - CONDITION AGGRAVATED [None]
  - HYPONATRAEMIA [None]
  - OEDEMA PERIPHERAL [None]
  - WEIGHT INCREASED [None]
